FAERS Safety Report 18397372 (Version 3)
Quarter: 2021Q1

REPORT INFORMATION
  Report Type: Spontaneous
  Country: US (occurrence: US)
  Receive Date: 20201019
  Receipt Date: 20210319
  Transmission Date: 20210419
  Serious: Yes (Other)
  Sender: FDA-Public Use
  Company Number: US-SA-2020SA286650

PATIENT
  Age: 39 Year
  Sex: Female
  Weight: 63 kg

DRUGS (3)
  1. DUPIXENT [Suspect]
     Active Substance: DUPILUMAB
     Indication: NASAL POLYPS
     Dosage: 300 MG, QOW
     Route: 058
     Dates: start: 20200123, end: 20200415
  2. DUPIXENT [Suspect]
     Active Substance: DUPILUMAB
     Indication: ASTHMA
     Dosage: 200 MG
     Route: 065
     Dates: end: 20210128
  3. DUPIXENT [Suspect]
     Active Substance: DUPILUMAB
     Indication: ASPIRIN-EXACERBATED RESPIRATORY DISEASE

REACTIONS (9)
  - Eyelid pain [Unknown]
  - Eyelid oedema [Unknown]
  - Vitreous floaters [Unknown]
  - Ocular vasculitis [Unknown]
  - Dermatitis atopic [Unknown]
  - Dry eye [Unknown]
  - Episcleritis [Unknown]
  - Off label use [Unknown]
  - Vision blurred [Unknown]

NARRATIVE: CASE EVENT DATE: 20200123
